FAERS Safety Report 5372650-X (Version None)
Quarter: 2007Q2

REPORT INFORMATION
  Report Type: 
  Country: None (occurrence: None)
  Receive Date: 20070627
  Receipt Date: 20070617
  Transmission Date: 20071010
  Serious: Yes (Hospitalization, Other)
  Sender: FDA-Public Use
  Company Number: US-PFIZER INC-2007049575

PATIENT
  Sex: Female
  Weight: 47.272 kg

DRUGS (7)
  1. LYRICA [Suspect]
     Indication: NEURALGIA
  2. GABAPENTIN [Suspect]
     Indication: ANXIETY
  3. GABAPENTIN [Suspect]
     Indication: PAIN
  4. AMITRIPTYLINE HYDROCHLORIDE [Suspect]
     Indication: NEURALGIA
     Dosage: FREQ:EVERYDAY
  5. AMITRIPTYLINE HYDROCHLORIDE [Suspect]
     Indication: SLEEP DISORDER
  6. KLONOPIN [Concomitant]
     Indication: NERVOUS SYSTEM DISORDER
  7. FLEXERIL [Concomitant]
     Indication: MUSCLE SPASMS

REACTIONS (9)
  - ACTIVITIES OF DAILY LIVING IMPAIRED [None]
  - EUPHORIC MOOD [None]
  - EXTRAPYRAMIDAL DISORDER [None]
  - FEELING ABNORMAL [None]
  - HEART RATE INCREASED [None]
  - LOGORRHOEA [None]
  - MUSCLE SPASMS [None]
  - NEURALGIA [None]
  - PSYCHOMOTOR HYPERACTIVITY [None]
